FAERS Safety Report 17279416 (Version 2)
Quarter: 2021Q2

REPORT INFORMATION
  Report Type: Report from Study
  Country: US (occurrence: US)
  Receive Date: 20200116
  Receipt Date: 20210419
  Transmission Date: 20210716
  Serious: No
  Sender: FDA-Public Use
  Company Number: NVSC2020US009188

PATIENT
  Age: 63 Year
  Sex: Male

DRUGS (2)
  1. ENTRESTO [Suspect]
     Active Substance: SACUBITRIL\VALSARTAN
     Indication: CARDIAC FAILURE
     Dosage: 1 DF, BID
     Route: 048
     Dates: start: 201911
  2. ENTRESTO [Suspect]
     Active Substance: SACUBITRIL\VALSARTAN
     Dosage: 1 DF, BID
     Route: 048
     Dates: start: 20210225

REACTIONS (5)
  - Productive cough [Recovering/Resolving]
  - Dysuria [Unknown]
  - Nasopharyngitis [Recovering/Resolving]
  - Wrong technique in product usage process [Unknown]
  - Renal disorder [Unknown]

NARRATIVE: CASE EVENT DATE: 20200110
